FAERS Safety Report 7742201-0 (Version None)
Quarter: 2011Q3

REPORT INFORMATION
  Report Type: 
  Country: None (occurrence: None)
  Receive Date: 20110826
  Receipt Date: 20110816
  Transmission Date: 20111222
  Serious: Yes (Hospitalization, Other)
  Sender: FDA-Public Use
  Company Number: 2010SP053375

PATIENT
  Age: 17 Year
  Sex: Female
  Weight: 99.7913 kg

DRUGS (2)
  1. SYNTHROID [Concomitant]
  2. NUVARING [Suspect]
     Indication: CONTRACEPTION
     Dates: start: 20051001, end: 20100701

REACTIONS (6)
  - CHOLECYSTITIS CHRONIC [None]
  - PULMONARY EMBOLISM [None]
  - DEEP VEIN THROMBOSIS [None]
  - CHOLELITHIASIS [None]
  - ADENOMYOSIS [None]
  - SINUS ARRHYTHMIA [None]
